FAERS Safety Report 5978974-7 (Version None)
Quarter: 2008Q4

REPORT INFORMATION
  Report Type: 
  Country: None (occurrence: None)
  Receive Date: 20081204
  Receipt Date: 20080222
  Transmission Date: 20090506
  Serious: No
  Sender: FDA-Public Use
  Company Number: US-ABBOTT-08P-163-0439544-00

PATIENT
  Sex: Male
  Weight: 79.904 kg

DRUGS (2)
  1. TRICOR [Suspect]
     Indication: BLOOD TRIGLYCERIDES INCREASED
     Route: 048
     Dates: start: 20080128
  2. TRICOR [Suspect]
     Indication: HYPERLIPIDAEMIA

REACTIONS (2)
  - FATIGUE [None]
  - SOMNOLENCE [None]
